FAERS Safety Report 9176669 (Version 1)
Quarter: 2013Q1

REPORT INFORMATION
  Report Type: Spontaneous
  Country: CZ (occurrence: CZ)
  Receive Date: 20130321
  Receipt Date: 20130321
  Transmission Date: 20140127
  Serious: Yes (Hospitalization)
  Sender: FDA-Public Use
  Company Number: CZ-JNJFOC-20130308741

PATIENT
  Sex: 0

DRUGS (12)
  1. DOXORUBICIN [Suspect]
     Indication: PLASMA CELL MYELOMA
     Dosage: ADMINISTERED ON DAY 1, 4, 8, AND 15 OF A 28-DAY CYCLE.
     Route: 042
  2. DOXORUBICIN [Suspect]
     Indication: AMYLOIDOSIS
     Dosage: ADMINISTERED ON DAY 1, 4, 8, AND 15 OF A 28-DAY CYCLE.
     Route: 042
  3. VELCADE [Suspect]
     Indication: PLASMA CELL MYELOMA
     Dosage: ADMINISTERED ON DAY 1, 4, 8, AND 15 OF A 28-DAY CYCLE.
     Route: 042
  4. VELCADE [Suspect]
     Indication: AMYLOIDOSIS
     Dosage: ADMINISTERED ON DAY 1, 4, 8, AND 15 OF A 28-DAY CYCLE.
     Route: 042
  5. DEXAMETHASONE [Suspect]
     Indication: PLASMA CELL MYELOMA
     Dosage: 20 OR 40 MG ADMINISTERED ON DAY 1, 4, 8, AND 15 OF A 28-DAY CYCLE.
     Route: 042
  6. DEXAMETHASONE [Suspect]
     Indication: AMYLOIDOSIS
     Dosage: 20 OR 40 MG ADMINISTERED ON DAY 1, 4, 8, AND 15 OF A 28-DAY CYCLE.
     Route: 042
  7. CYCLOPHOSPHAMIDE [Suspect]
     Indication: PLASMA CELL MYELOMA
     Route: 048
  8. CYCLOPHOSPHAMIDE [Suspect]
     Indication: AMYLOIDOSIS
     Route: 048
  9. CYCLOPHOSPHAMIDE [Suspect]
     Indication: PLASMA CELL MYELOMA
     Dosage: 14-DAY INTERVALS
     Route: 042
  10. CYCLOPHOSPHAMIDE [Suspect]
     Indication: AMYLOIDOSIS
     Dosage: 14-DAY INTERVALS
     Route: 042
  11. DEXAMETHASONE [Suspect]
     Indication: PLASMA CELL MYELOMA
     Dosage: DAY 1-4 AND 15-18 OF A 28-DAY CYCLE
     Route: 048
  12. DEXAMETHASONE [Suspect]
     Indication: AMYLOIDOSIS
     Dosage: DAY 1-4 AND 15-18 OF A 28-DAY CYCLE
     Route: 048

REACTIONS (1)
  - Pulmonary oedema [Unknown]
